FAERS Safety Report 13488017 (Version 1)
Quarter: 2017Q2

REPORT INFORMATION
  Report Type: Spontaneous
  Country: US (occurrence: US)
  Receive Date: 20170426
  Receipt Date: 20170426
  Transmission Date: 20170830
  Serious: No
  Sender: FDA-Public Use
  Company Number: US-ALKERMES INC.-ALK-2016-002355

PATIENT
  Age: 47 Year
  Sex: Female

DRUGS (2)
  1. VIVITROL [Suspect]
     Active Substance: NALTREXONE
     Indication: DRUG USE DISORDER
  2. VIVITROL [Suspect]
     Active Substance: NALTREXONE
     Indication: ALCOHOLISM
     Dosage: 380 MG, Q4WK
     Route: 030

REACTIONS (9)
  - Injection site reaction [Not Recovered/Not Resolved]
  - Pain [Unknown]
  - Injection site swelling [Not Recovered/Not Resolved]
  - Wrong technique in product usage process [Recovered/Resolved]
  - Dizziness [Unknown]
  - Injection site mass [Not Recovered/Not Resolved]
  - Nausea [Unknown]
  - Injection site pain [Not Recovered/Not Resolved]
  - White blood cell count increased [Unknown]

NARRATIVE: CASE EVENT DATE: 2016
